FAERS Safety Report 13492613 (Version 1)
Quarter: 2017Q2

REPORT INFORMATION
  Report Type: Spontaneous
  Country: GE (occurrence: GE)
  Receive Date: 20170427
  Receipt Date: 20170427
  Transmission Date: 20170830
  Serious: Yes (Other)
  Sender: FDA-Public Use
  Company Number: GE-TAKEDA-2017MPI003741

PATIENT

DRUGS (4)
  1. THALIDOMIDE [Suspect]
     Active Substance: THALIDOMIDE
     Indication: PLASMA CELL MYELOMA
     Dosage: 100 MG, QD
     Route: 065
  2. DEXAMETHASONE. [Suspect]
     Active Substance: DEXAMETHASONE
     Indication: PLASMA CELL MYELOMA
     Dosage: 40 MG, UNK
     Route: 065
  3. VELCADE [Suspect]
     Active Substance: BORTEZOMIB
     Indication: PLASMA CELL MYELOMA
     Dosage: 1.3 MG/M2, UNK
     Route: 065
  4. ASPIRIN. [Concomitant]
     Active Substance: ASPIRIN
     Indication: THROMBOSIS PROPHYLAXIS
     Dosage: UNK
     Route: 065

REACTIONS (28)
  - Oedema peripheral [Unknown]
  - Pain in extremity [Unknown]
  - Bone pain [Unknown]
  - Deep vein thrombosis [Unknown]
  - Herpes zoster [Unknown]
  - Gastritis [Unknown]
  - Rash [Unknown]
  - Pyrexia [Unknown]
  - Pulmonary embolism [Unknown]
  - Thrombocytopenia [Unknown]
  - Neutropenia [Unknown]
  - Anaemia [Unknown]
  - Dyspnoea [Unknown]
  - Decreased appetite [Unknown]
  - Cough [Unknown]
  - Neuropathy peripheral [Unknown]
  - Insomnia [Unknown]
  - Upper respiratory tract infection [Unknown]
  - Headache [Unknown]
  - Vomiting [Unknown]
  - Fatigue [Unknown]
  - Transaminases increased [Unknown]
  - Paraesthesia [Unknown]
  - Tremor [Unknown]
  - Agitation [Unknown]
  - Constipation [Unknown]
  - Nausea [Unknown]
  - Muscle spasms [Unknown]
